FAERS Safety Report 20167042 (Version 2)
Quarter: 2022Q1

REPORT INFORMATION
  Report Type: Spontaneous
  Country: CH (occurrence: CH)
  Receive Date: 20211209
  Receipt Date: 20220124
  Transmission Date: 20220423
  Serious: Yes (Life-Threatening, Hospitalization, Other)
  Sender: FDA-Public Use
  Company Number: CH-SA-SAC20211202000226

PATIENT
  Sex: Male
  Weight: 74 kg

DRUGS (1)
  1. MYOZYME [Suspect]
     Active Substance: ALGLUCOSIDASE ALFA
     Indication: Glycogen storage disease type II
     Dosage: 20 MG/UG, QOW
     Dates: start: 20180828

REACTIONS (1)
  - Infarction [Recovering/Resolving]

NARRATIVE: CASE EVENT DATE: 20211108
